FAERS Safety Report 12907405 (Version 1)
Quarter: 2016Q4

REPORT INFORMATION
  Report Type: Spontaneous
  Country: US (occurrence: US)
  Receive Date: 20161103
  Receipt Date: 20161103
  Transmission Date: 20170207
  Serious: Yes (Other)
  Sender: FDA-Public Use
  Company Number: US-GLAXOSMITHKLINE-US2016GSK161558

PATIENT
  Sex: Female
  Weight: 47.62 kg

DRUGS (9)
  1. ACETAMINOPHEN. [Suspect]
     Active Substance: ACETAMINOPHEN
     Indication: HEADACHE
     Dosage: UNK
     Route: 065
     Dates: start: 200810, end: 200910
  2. TYLENOL EXTRA STRENGTH [Suspect]
     Active Substance: ACETAMINOPHEN
     Indication: MIGRAINE
     Dosage: UNK
     Route: 065
  3. EQUATE PAIN RELIEVER EXTRA STRENGTH [Suspect]
     Active Substance: ACETAMINOPHEN
     Indication: HEADACHE
     Dosage: UNK
     Route: 065
  4. ACETAMINOPHEN. [Suspect]
     Active Substance: ACETAMINOPHEN
     Indication: PAIN
  5. ACETAMINOPHEN TABLET [Suspect]
     Active Substance: ACETAMINOPHEN
     Indication: PRODUCT USED FOR UNKNOWN INDICATION
     Dosage: 650 MG, UNK
     Route: 065
     Dates: start: 20100316
  6. THERAFLU NOS [Suspect]
     Active Substance: ACETAMINOPHEN AND OR DEXTROMETHORPHAN AND OR DIPHENHYDRAMINE AND OR GUAIFENESIN AND OR PHENYLEPHRINE AND OR PSEUDOEPHEDRINE
     Indication: INFLUENZA
     Dosage: UNK
     Route: 065
  7. TYLENOL [Suspect]
     Active Substance: ACETAMINOPHEN
     Indication: HEADACHE
     Dosage: 4 TO 5 TYLENOL AT A TIME
     Route: 065
     Dates: start: 2008, end: 2010
  8. THERAFLU NOS [Suspect]
     Active Substance: ACETAMINOPHEN AND OR DEXTROMETHORPHAN AND OR DIPHENHYDRAMINE AND OR GUAIFENESIN AND OR PHENYLEPHRINE AND OR PSEUDOEPHEDRINE
     Indication: INFLUENZA
     Dosage: UNK
     Route: 065
     Dates: start: 20091020, end: 20091029
  9. TYLENOL [Suspect]
     Active Substance: ACETAMINOPHEN
     Indication: INSOMNIA

REACTIONS (9)
  - Syncope [Unknown]
  - Abdominal pain upper [Unknown]
  - Seizure [Unknown]
  - Asthenia [Unknown]
  - Vomiting [Unknown]
  - Acute hepatic failure [Unknown]
  - Hypoaesthesia [Unknown]
  - Diplopia [Unknown]
  - Toxicity to various agents [Unknown]
